FAERS Safety Report 18236249 (Version 4)
Quarter: 2020Q4

REPORT INFORMATION
  Report Type: Spontaneous
  Country: ES (occurrence: ES)
  Receive Date: 20200906
  Receipt Date: 20201002
  Transmission Date: 20210113
  Serious: Yes (Other)
  Sender: FDA-Public Use
  Company Number: ES-UCBSA-2020033855

PATIENT
  Age: 52 Year
  Sex: Male
  Weight: 52 kg

DRUGS (8)
  1. SINEMET [Suspect]
     Active Substance: CARBIDOPA\LEVODOPA
     Indication: PRODUCT USED FOR UNKNOWN INDICATION
     Dosage: SINEMET RETARD
     Dates: start: 20200903
  2. DUODOPA [Suspect]
     Active Substance: CARBIDOPA\LEVODOPA
     Indication: PARKINSON^S DISEASE
     Dosage: UNK
     Dates: start: 20180524, end: 202007
  3. DUODOPA [Suspect]
     Active Substance: CARBIDOPA\LEVODOPA
     Dosage: INCREASE MORNING DOSE 0.5 ML, CONTINUOUS DOSE 0.2 ML/H
     Dates: start: 202007, end: 20200812
  4. DUODOPA [Suspect]
     Active Substance: CARBIDOPA\LEVODOPA
     Dosage: LOWER THE MORNING DOSE 0.5 ML, LOWER THE CONTINUOUS DOSE 0.2 ML / H
     Dates: start: 20200812
  5. STALEVO [Suspect]
     Active Substance: CARBIDOPA\ENTACAPONE\LEVODOPA
     Indication: PRODUCT USED FOR UNKNOWN INDICATION
     Dosage: UNK
     Dates: start: 20200903
  6. NEUPRO [Suspect]
     Active Substance: ROTIGOTINE
     Indication: PARKINSON^S DISEASE
     Dosage: UNK
  7. RIVASTIGMINE. [Suspect]
     Active Substance: RIVASTIGMINE
     Indication: COGNITIVE DISORDER
     Dosage: 4.6 MILLIGRAM, ONCE DAILY (QD)
     Route: 062
     Dates: start: 20200731
  8. RIVASTIGMINE. [Suspect]
     Active Substance: RIVASTIGMINE
     Indication: DEMENTIA

REACTIONS (26)
  - Tooth disorder [Unknown]
  - Confusional state [Unknown]
  - Decreased appetite [Recovered/Resolved]
  - Unevaluable event [Unknown]
  - Freezing phenomenon [Unknown]
  - Stubbornness [Recovered/Resolved]
  - Gait disturbance [Not Recovered/Not Resolved]
  - Initial insomnia [Not Recovered/Not Resolved]
  - Cognitive disorder [Unknown]
  - Bradykinesia [Recovering/Resolving]
  - Disorientation [Recovering/Resolving]
  - Asthenia [Not Recovered/Not Resolved]
  - Depressed mood [Not Recovered/Not Resolved]
  - Amnesia [Unknown]
  - Feeling abnormal [Unknown]
  - Malaise [Unknown]
  - Speech disorder [Unknown]
  - General physical health deterioration [Not Recovered/Not Resolved]
  - Therapeutic product effect incomplete [Unknown]
  - Obsessive-compulsive disorder [Recovered/Resolved]
  - Daydreaming [Unknown]
  - Parkinson^s disease [Unknown]
  - Weight decreased [Recovered/Resolved]
  - Dementia [Unknown]
  - Distractibility [Recovered/Resolved]
  - Dysphagia [Recovered/Resolved]

NARRATIVE: CASE EVENT DATE: 2018
